FAERS Safety Report 6785235-5 (Version None)
Quarter: 2010Q2

REPORT INFORMATION
  Report Type: 
  Country: None (occurrence: None)
  Receive Date: 20100622
  Receipt Date: 20100622
  Transmission Date: 20101027
  Serious: Yes (Other)
  Sender: FDA-Public Use
  Company Number: None

PATIENT
  Age: 67 Year
  Sex: Female
  Weight: 77.1115 kg

DRUGS (1)
  1. NITROFURANTOIN 100 MG CMYL [Suspect]
     Indication: URINARY TRACT INFECTION
     Dosage: 100 MG TWICE A DAY PO
     Route: 048
     Dates: start: 20100616, end: 20100618

REACTIONS (8)
  - ABDOMINAL PAIN [None]
  - ABDOMINAL PAIN UPPER [None]
  - FATIGUE [None]
  - HYPERSOMNIA [None]
  - HYPOPHAGIA [None]
  - NAUSEA [None]
  - PYREXIA [None]
  - RASH [None]
